FAERS Safety Report 4687435-7 (Version None)
Quarter: 2005Q2

REPORT INFORMATION
  Report Type: 
  Country: None (occurrence: None)
  Receive Date: 20050609
  Receipt Date: 20050609
  Transmission Date: 20051028
  Serious: Yes (Other)
  Sender: FDA-Public Use
  Company Number: None

PATIENT
  Age: 81 Year
  Sex: Male
  Weight: 81.6475 kg

DRUGS (2)
  1. MAALOX -TOTAL STOMACH RELIEF- CONTAINS BISMUTH SALICYLATE NOVARTIS [Suspect]
     Indication: DYSPEPSIA
     Dosage: 30 ML ONE TIME ORAL
     Route: 048
     Dates: start: 20051006, end: 20051006
  2. MAALOX -TOTAL STOMACH RELIEF- CONTAINS BISMUTH SALICYLATE NOVARTIS [Suspect]
     Indication: STOMACH DISCOMFORT
     Dosage: 30 ML ONE TIME ORAL
     Route: 048
     Dates: start: 20051006, end: 20051006

REACTIONS (4)
  - DRUG INEFFECTIVE [None]
  - FAECES DISCOLOURED [None]
  - FEELING ABNORMAL [None]
  - MEDICATION ERROR [None]
